FAERS Safety Report 14903852 (Version 1)
Quarter: 2018Q2

REPORT INFORMATION
  Report Type: Spontaneous
  Country: US (occurrence: US)
  Receive Date: 20180430
  Receipt Date: 20180430
  Transmission Date: 20180711
  Serious: No
  Sender: FDA-Public Use
  Company Number: None

PATIENT
  Sex: Female
  Weight: 52.2 kg

DRUGS (6)
  1. LEVOXYL [Concomitant]
     Active Substance: LEVOTHYROXINE SODIUM
  2. VITAMIN D [Concomitant]
     Active Substance: CHOLECALCIFEROL
  3. DYSPORT [Suspect]
     Active Substance: ABOBOTULINUMTOXINA
     Indication: SKIN WRINKLING
     Dosage: ?          OTHER FREQUENCY:EVERY 3 MOS AS DES;?
     Route: 058
     Dates: start: 20180319, end: 20180402
  4. OLIVE LEAF EXTRACT [Concomitant]
  5. ELDERBERRY LIQUID [Concomitant]
  6. OREGANO. [Concomitant]
     Active Substance: OREGANO

REACTIONS (10)
  - Disorientation [None]
  - Fatigue [None]
  - Palpitations [None]
  - Diplopia [None]
  - Insomnia [None]
  - Feeling jittery [None]
  - Hot flush [None]
  - Panic attack [None]
  - Headache [None]
  - Dizziness [None]
